FAERS Safety Report 16599548 (Version 6)
Quarter: 2021Q3

REPORT INFORMATION
  Report Type: Spontaneous
  Country: CA (occurrence: CA)
  Receive Date: 20190720
  Receipt Date: 20210730
  Transmission Date: 20211014
  Serious: Yes (Other)
  Sender: FDA-Public Use
  Company Number: CA-AUROBINDO-AUR-APL-2019-040402

PATIENT
  Age: 60 Year
  Sex: Female

DRUGS (74)
  1. MONTELUKAST [Suspect]
     Active Substance: MONTELUKAST SODIUM
     Indication: PRODUCT USED FOR UNKNOWN INDICATION
     Dosage: 10 MILLIGRAM, ONCE A DAY
     Route: 065
  2. RISEDRONATE TABLET [Suspect]
     Active Substance: RISEDRONATE SODIUM
     Indication: PRODUCT USED FOR UNKNOWN INDICATION
     Dosage: 35 MILLIGRAM, EVERY WEEK
     Route: 065
  3. AIROMIR [Suspect]
     Active Substance: ALBUTEROL SULFATE
     Indication: PRODUCT USED FOR UNKNOWN INDICATION
     Dosage: AS REQUIRED
     Route: 065
  4. COLACE [Suspect]
     Active Substance: DOCUSATE SODIUM
     Dosage: 3 DOSAGE FORM
     Route: 065
  5. FLUTICASONE PROPIONATE. [Suspect]
     Active Substance: FLUTICASONE PROPIONATE
     Dosage: UNK, TWO TIMES  A DAY
  6. OXYNEO [Suspect]
     Active Substance: OXYCODONE
     Dosage: 15 MILLIGRAM, TWO TIMES A DAY
     Route: 065
  7. OXYCODONE HYDROCHLORIDE. [Suspect]
     Active Substance: OXYCODONE HYDROCHLORIDE
     Dosage: 15 MILLIGRAM, TWO TIMES A DAY
     Route: 065
  8. PRAMOXINE HYDROCHLORIDE. [Suspect]
     Active Substance: PRAMOXINE HYDROCHLORIDE
     Indication: PRODUCT USED FOR UNKNOWN INDICATION
     Dosage: UNK
     Route: 065
  9. UMECLIDINIUM BROMIDE [Suspect]
     Active Substance: UMECLIDINIUM BROMIDE
     Indication: PRODUCT USED FOR UNKNOWN INDICATION
     Dosage: 1 DOSAGE FORM, ONCE A DAY
  10. METAMUCIL [Concomitant]
     Active Substance: PLANTAGO SEED
     Indication: PRODUCT USED FOR UNKNOWN INDICATION
     Dosage: UNK
     Route: 065
  11. CLARITHROMYCIN. [Suspect]
     Active Substance: CLARITHROMYCIN
     Dosage: 2.0 DOSAGE FORM, ONCE A DAY
     Route: 065
  12. FLUTICASONE PROPIONATE. [Suspect]
     Active Substance: FLUTICASONE PROPIONATE
     Indication: PRODUCT USED FOR UNKNOWN INDICATION
     Dosage: UNK
     Route: 065
  13. FLUTICASONE PROPIONATE. [Suspect]
     Active Substance: FLUTICASONE PROPIONATE
     Dosage: 2 DOSAGE FORM, ONCE A DAY
  14. OXYCODONE [Suspect]
     Active Substance: OXYCODONE
     Indication: PRODUCT USED FOR UNKNOWN INDICATION
     Dosage: 45.0 MILLIGRAM, ONCE A DAY
     Route: 065
  15. PROCTODAN?HC [Suspect]
     Active Substance: HYDROCORTISONE\PRAMOXINE\ZINC SULFATE
     Indication: PRODUCT USED FOR UNKNOWN INDICATION
     Dosage: UNK
     Route: 065
  16. POLYMOX [Suspect]
     Active Substance: AMOXICILLIN
     Dosage: 40.0 MILLIGRAM
     Route: 065
  17. INFLUENZA VACCINE [Concomitant]
     Active Substance: INFLUENZA VIRUS VACCINE
     Indication: PROPHYLAXIS
     Dosage: UNK
     Route: 065
  18. PULMICORT TURBUHALER [Concomitant]
     Active Substance: BUDESONIDE
     Indication: SEASONAL ALLERGY
     Dosage: UNK, TWO TIMES A DAY
     Route: 065
  19. ACTONEL [Suspect]
     Active Substance: RISEDRONATE SODIUM
     Indication: PRODUCT USED FOR UNKNOWN INDICATION
     Dosage: 35 MILLIGRAM, EVERY WEEK
     Route: 065
  20. OXYNEO [Suspect]
     Active Substance: OXYCODONE
     Dosage: 15 MILLIGRAM, TWO TIMES A DAY
     Route: 065
  21. OXYCODONE [Suspect]
     Active Substance: OXYCODONE
     Indication: PRODUCT USED FOR UNKNOWN INDICATION
     Dosage: 3.0 DOSAGE FORM, ONCE A DAY
     Route: 065
  22. OXYCODONE HYDROCHLORIDE. [Suspect]
     Active Substance: OXYCODONE HYDROCHLORIDE
     Dosage: 45 MILLIGRAM, ONCE A DAY
     Route: 065
  23. PREDNISONE. [Suspect]
     Active Substance: PREDNISONE
     Indication: PRODUCT USED FOR UNKNOWN INDICATION
     Dosage: 15 MILLIGRAM, ONCE A DAY
     Route: 065
  24. XARELTO [Suspect]
     Active Substance: RIVAROXABAN
     Indication: PRODUCT USED FOR UNKNOWN INDICATION
     Dosage: 10 MILLIGRAM, ONCE A DAY
     Route: 065
  25. PSYLLIUM HYDROPHILIC MUCILLOID [Concomitant]
     Active Substance: PSYLLIUM HUSK
     Indication: PRODUCT USED FOR UNKNOWN INDICATION
     Dosage: UNK
     Route: 065
  26. AMOXICILLIN. [Suspect]
     Active Substance: AMOXICILLIN
     Dosage: 2 MILLIGRAM, ONCE A DAY
     Route: 065
  27. ESTRADIOL. [Suspect]
     Active Substance: ESTRADIOL
     Indication: PRODUCT USED FOR UNKNOWN INDICATION
     Dosage: 3 DOSAGE FORM, ONCE A DAY
     Route: 065
  28. ESTRADIOL. [Suspect]
     Active Substance: ESTRADIOL
     Dosage: UNK, ONE EVERY DAY
     Route: 065
  29. FORMOTEROL FUMARATE [Suspect]
     Active Substance: FORMOTEROL FUMARATE
     Dosage: UNK,TWO TIMES A DAY
     Route: 065
  30. FORMOTEROL FUMARATE [Suspect]
     Active Substance: FORMOTEROL FUMARATE
     Dosage: UNK,TWO TIMES A DAY
  31. IPRATROPIUM BROMIDE;SALBUTAMOL [Suspect]
     Active Substance: ALBUTEROL SULFATE\IPRATROPIUM BROMIDE
     Indication: PRODUCT USED FOR UNKNOWN INDICATION
     Dosage: UNK
     Route: 065
  32. OXYCODONE HYDROCHLORIDE. [Suspect]
     Active Substance: OXYCODONE HYDROCHLORIDE
     Dosage: 3 DOSAGE FORM, ONCE A DAY
     Route: 065
  33. RIVAROXABAN [Suspect]
     Active Substance: RIVAROXABAN
     Indication: PRODUCT USED FOR UNKNOWN INDICATION
     Dosage: 10 MILLIGRAM, ONCE A DAY
     Route: 065
  34. SALBUTAMOL [Suspect]
     Active Substance: ALBUTEROL
     Indication: PRODUCT USED FOR UNKNOWN INDICATION
     Dosage: UNK
     Route: 065
  35. MULTI VITAMIN [Concomitant]
     Active Substance: VITAMINS
     Indication: PRODUCT USED FOR UNKNOWN INDICATION
     Dosage: UNK
     Route: 065
  36. PLANTAGO OVATA [Concomitant]
     Active Substance: HERBALS\PLANTAGO OVATA LEAF
     Indication: PRODUCT USED FOR UNKNOWN INDICATION
     Dosage: UNK
     Route: 065
  37. CLARITHROMYCIN. [Suspect]
     Active Substance: CLARITHROMYCIN
     Dosage: 2 MILLIGRAM, ONCE A DAY
     Route: 065
  38. NYSTATIN. [Suspect]
     Active Substance: NYSTATIN
     Indication: PRODUCT USED FOR UNKNOWN INDICATION
     Dosage: UNK
     Route: 065
  39. OXYNEO [Suspect]
     Active Substance: OXYCODONE
     Indication: PRODUCT USED FOR UNKNOWN INDICATION
     Dosage: 15 MILLIGRAM, 3 TIMES A DAY
     Route: 065
  40. OXYNEO [Suspect]
     Active Substance: OXYCODONE
     Dosage: 3.0 DOSAGE FORM, ONCE A DAY
     Route: 065
  41. OXYNEO [Suspect]
     Active Substance: OXYCODONE
     Indication: PRODUCT USED FOR UNKNOWN INDICATION
     Dosage: 15.0 MILLIGRAM, 3 TIMES A DAY
     Route: 065
  42. OXYCODONE HYDROCHLORIDE. [Suspect]
     Active Substance: OXYCODONE HYDROCHLORIDE
     Indication: PRODUCT USED FOR UNKNOWN INDICATION
     Dosage: 15 MILLIGRAM, 3 TIMES A DAY
     Route: 065
  43. CLAVULIN [Suspect]
     Active Substance: AMOXICILLIN\CLAVULANATE POTASSIUM
     Dosage: 40 MILLIGRAM, TWO TIMES A DAY
     Route: 065
  44. ZINC SULFATE. [Suspect]
     Active Substance: ZINC SULFATE
     Indication: PRODUCT USED FOR UNKNOWN INDICATION
     Dosage: UNK
     Route: 065
  45. AMOXICILLIN. [Suspect]
     Active Substance: AMOXICILLIN
     Indication: PRODUCT USED FOR UNKNOWN INDICATION
     Dosage: 40 MILLIGRAM, TWO TIMES A DAY
     Route: 065
  46. PANTOPRAZOLE [Suspect]
     Active Substance: PANTOPRAZOLE
     Indication: PRODUCT USED FOR UNKNOWN INDICATION
     Dosage: 40 MILLIGRAM, TWO TIMES A DAY
     Route: 065
  47. ACTONEL [Suspect]
     Active Substance: RISEDRONATE SODIUM
     Indication: PRODUCT USED FOR UNKNOWN INDICATION
     Dosage: 35 MILLIGRAM, EVERY WEEK
     Route: 065
  48. BREO ELLIPTA [Suspect]
     Active Substance: FLUTICASONE FUROATE\VILANTEROL TRIFENATATE
     Indication: PRODUCT USED FOR UNKNOWN INDICATION
     Dosage: 1 DOSAGE FORM, ONCE A DAY
  49. COLACE [Suspect]
     Active Substance: DOCUSATE SODIUM
     Indication: PRODUCT USED FOR UNKNOWN INDICATION
     Dosage: 200 MILLIGRAM, ONCE A DAY
     Route: 065
  50. FLUCONAZOLE. [Suspect]
     Active Substance: FLUCONAZOLE
     Indication: PRODUCT USED FOR UNKNOWN INDICATION
     Dosage: 50 MILLIGRAM, CYCLICAL
     Route: 065
  51. FORMOTEROL FUMARATE [Suspect]
     Active Substance: FORMOTEROL FUMARATE
     Dosage: 2 DOSAGE FORM, ONCE A DAY
     Route: 065
  52. HYDROCORTISONE ACETATE;PRAMOCAINE HYDROCHLORIDE;ZINC SULFATE [Suspect]
     Active Substance: HYDROCORTISONE ACETATE\PRAMOXINE HYDROCHLORIDE\ZINC SULFATE
     Indication: PRODUCT USED FOR UNKNOWN INDICATION
     Dosage: UNK
     Route: 065
  53. NYSTATIN. [Suspect]
     Active Substance: NYSTATIN
     Indication: PRODUCT USED FOR UNKNOWN INDICATION
     Dosage: 3 DOSAGE FORM, ONCE A DAY
     Route: 048
  54. VENTOLIN [Suspect]
     Active Substance: ALBUTEROL SULFATE
     Indication: PRODUCT USED FOR UNKNOWN INDICATION
     Dosage: UNK, AS REQUIRED
     Route: 065
  55. ANUGESIC (PRAMOCAINE HYDROCHLORIDE) [Suspect]
     Active Substance: PRAMOXINE HYDROCHLORIDE
     Indication: PRODUCT USED FOR UNKNOWN INDICATION
     Dosage: UNK
     Route: 065
  56. ESOMEPRAZOLE MAGNESIUM;NAPROXEN [Suspect]
     Active Substance: ESOMEPRAZOLE MAGNESIUM\NAPROXEN
     Indication: PRODUCT USED FOR UNKNOWN INDICATION
     Dosage: 40 MILLIGRAM, TWO TIMES A DAY
     Route: 065
  57. MUCOFALK ORANGE [Concomitant]
     Active Substance: HERBALS\PLANTAGO OVATA LEAF
     Indication: PRODUCT USED FOR UNKNOWN INDICATION
     Dosage: UNK
     Route: 065
  58. ATOCK [Suspect]
     Active Substance: FORMOTEROL FUMARATE
     Indication: PRODUCT USED FOR UNKNOWN INDICATION
     Dosage: 1 DOSAGTWO TIMES A DAYE FORM,
     Route: 065
  59. CLARITHROMYCIN. [Suspect]
     Active Substance: CLARITHROMYCIN
     Indication: PRODUCT USED FOR UNKNOWN INDICATION
     Dosage: 40 MILLIGRAM, TWO TIMES A DAY
     Route: 065
  60. ESOMEPRAZOLE MAGNESIUM TRIHYDRATE [Suspect]
     Active Substance: ESOMEPRAZOLE MAGNESIUM
     Indication: PRODUCT USED FOR UNKNOWN INDICATION
     Dosage: 40.0 MILLIGRAM, TWO TIMES A DAY
     Route: 065
  61. FORADIL [Suspect]
     Active Substance: FORMOTEROL FUMARATE
     Indication: PRODUCT USED FOR UNKNOWN INDICATION
     Dosage: UNK, TWICE A DAY
  62. UMECLIDINIUM BROMIDE [Suspect]
     Active Substance: UMECLIDINIUM BROMIDE
     Dosage: 1 MILLIGRAM, ONCE A DAY
     Route: 065
  63. XARELTO [Suspect]
     Active Substance: RIVAROXABAN
     Indication: PRODUCT USED FOR UNKNOWN INDICATION
     Dosage: 10 MILLIGRAM, ONCE A DAY
     Route: 065
  64. ALBUTEROL. [Suspect]
     Active Substance: ALBUTEROL
     Indication: PRODUCT USED FOR UNKNOWN INDICATION
     Dosage: UNK
     Route: 065
  65. CLAVULIN [Suspect]
     Active Substance: AMOXICILLIN\CLAVULANATE POTASSIUM
     Indication: PRODUCT USED FOR UNKNOWN INDICATION
     Dosage: 2 MILLIGRAM, FOUR TIMES/DAY
     Route: 065
  66. CORTIMENT (HYDROCORTISONE) [Suspect]
     Active Substance: HYDROCORTISONE
     Indication: PRODUCT USED FOR UNKNOWN INDICATION
     Dosage: 2 DOSAGE FORM, ONCE A DAY
     Route: 065
  67. PNEUMOCOCCAL VACCINE POLYVALENT NOS [Concomitant]
     Active Substance: PNEUMOCOCCAL VACCINE POLYVALENT
     Indication: PRODUCT USED FOR UNKNOWN INDICATION
     Dosage: UNK
     Route: 065
  68. ATOCK [Suspect]
     Active Substance: FORMOTEROL FUMARATE
     Dosage: 2 DOSAGE FORM, ONCE A DAY
     Route: 065
  69. FORMOTEROL FUMARATE [Suspect]
     Active Substance: FORMOTEROL FUMARATE
     Indication: PRODUCT USED FOR UNKNOWN INDICATION
     Dosage: 1.0 DOSAGE FORM, TWO TIMES A DAY
     Route: 065
  70. HYDROCORTISONE ACETATE. [Suspect]
     Active Substance: HYDROCORTISONE ACETATE
     Indication: PRODUCT USED FOR UNKNOWN INDICATION
     Dosage: UNK
     Route: 065
  71. OXYNEO [Suspect]
     Active Substance: OXYCODONE
     Indication: PRODUCT USED FOR UNKNOWN INDICATION
     Dosage: 3.0 DOSAGE FORM, ONCE A DAY
     Route: 065
  72. POLYMOX [Suspect]
     Active Substance: AMOXICILLIN
     Indication: PRODUCT USED FOR UNKNOWN INDICATION
     Dosage: 2.0 DOSAGE FORM, ONCE A DAY
     Route: 065
  73. FLONASE [Suspect]
     Active Substance: FLUTICASONE PROPIONATE
     Indication: PRODUCT USED FOR UNKNOWN INDICATION
     Dosage: 2 DOSAGE FORM, ONCE A DAY
     Route: 065
  74. PULMICORT TURBUHALER [Concomitant]
     Active Substance: BUDESONIDE
     Dosage: 2 DOSAGE FORM, ONCE A DAY
     Route: 045

REACTIONS (36)
  - Lower respiratory tract infection [Unknown]
  - Disease recurrence [Unknown]
  - Dyspnoea [Unknown]
  - Gastrooesophageal reflux disease [Unknown]
  - Osteoarthritis [Unknown]
  - Weight increased [Unknown]
  - Wheezing [Unknown]
  - Chronic sinusitis [Unknown]
  - Fungal infection [Unknown]
  - Obstructive airways disorder [Unknown]
  - Respiratory symptom [Unknown]
  - Sinusitis fungal [Unknown]
  - Pulmonary embolism [Unknown]
  - Sputum increased [Unknown]
  - Deep vein thrombosis [Unknown]
  - Tricuspid valve incompetence [Unknown]
  - Asthma [Unknown]
  - Dyspnoea exertional [Unknown]
  - Salpingo-oophorectomy unilateral [Unknown]
  - Embolism venous [Unknown]
  - Candida infection [Unknown]
  - Cough [Unknown]
  - Diastolic dysfunction [Unknown]
  - Female genital tract fistula [Unknown]
  - Hysterectomy [Unknown]
  - Osteoporosis [Unknown]
  - Diverticulum [Unknown]
  - Hiatus hernia [Unknown]
  - Iron deficiency anaemia [Unknown]
  - Nasal polyps [Unknown]
  - Sinusitis [Unknown]
  - Chest discomfort [Unknown]
  - Eczema [Unknown]
  - Emphysema [Unknown]
  - Oedema peripheral [Unknown]
  - Sleep apnoea syndrome [Unknown]
